FAERS Safety Report 9651491 (Version 1)
Quarter: 2013Q4

REPORT INFORMATION
  Report Type: Spontaneous
  Country: US (occurrence: US)
  Receive Date: 20131029
  Receipt Date: 20131029
  Transmission Date: 20140711
  Serious: No
  Sender: FDA-Public Use
  Company Number: US-ENDO PHARMACEUTICALS INC.-FOLI20130002

PATIENT
  Age: 41 Year
  Sex: Female

DRUGS (4)
  1. FOLIC ACID TABLETS [Suspect]
     Indication: PSORIATIC ARTHROPATHY
     Route: 048
     Dates: start: 201212
  2. METHOTREXATE [Concomitant]
     Indication: PSORIATIC ARTHROPATHY
     Dosage: UNKNOWN
     Route: 065
  3. HYDROCODONE/ACETAMINOPHEN [Concomitant]
     Indication: ARTHRALGIA
     Dosage: UNKNOWN
     Route: 065
  4. HYDROCODONE/ACETAMINOPHEN [Concomitant]
     Indication: PSORIASIS

REACTIONS (4)
  - Hypersensitivity [Not Recovered/Not Resolved]
  - Stomatitis [Not Recovered/Not Resolved]
  - Psoriatic arthropathy [Recovering/Resolving]
  - Drug ineffective for unapproved indication [Recovering/Resolving]
